FAERS Safety Report 11095755 (Version 8)
Quarter: 2016Q1

REPORT INFORMATION
  Report Type: Report from Study
  Country: PL (occurrence: PL)
  Receive Date: 20150507
  Receipt Date: 20160106
  Transmission Date: 20160525
  Serious: Yes (Hospitalization)
  Sender: FDA-Public Use
  Company Number: PL-ROCHE-1573821

PATIENT
  Age: 64 Year
  Sex: Male

DRUGS (7)
  1. GDC-0199 (BCL-2 SELECTIVE INHIBITOR) [Suspect]
     Active Substance: VENETOCLAX
     Indication: CHRONIC LYMPHOCYTIC LEUKAEMIA
     Route: 048
     Dates: start: 20150311, end: 20150322
  2. GDC-0199 (BCL-2 SELECTIVE INHIBITOR) [Suspect]
     Active Substance: VENETOCLAX
     Route: 048
     Dates: start: 20150323, end: 20150329
  3. GDC-0199 (BCL-2 SELECTIVE INHIBITOR) [Suspect]
     Active Substance: VENETOCLAX
     Route: 048
     Dates: start: 20150422
  4. RITUXIMAB [Suspect]
     Active Substance: RITUXIMAB
     Indication: CHRONIC LYMPHOCYTIC LEUKAEMIA
     Route: 042
  5. GDC-0199 (BCL-2 SELECTIVE INHIBITOR) [Suspect]
     Active Substance: VENETOCLAX
     Route: 048
     Dates: start: 20150330, end: 20150407
  6. MILURIT [Concomitant]
     Active Substance: ALLOPURINOL
     Indication: PROPHYLAXIS
     Route: 065
     Dates: start: 20150311
  7. GDC-0199 (BCL-2 SELECTIVE INHIBITOR) [Suspect]
     Active Substance: VENETOCLAX
     Route: 048
     Dates: start: 20150408, end: 20150414

REACTIONS (1)
  - Autoimmune haemolytic anaemia [Recovered/Resolved with Sequelae]

NARRATIVE: CASE EVENT DATE: 20150429
